FAERS Safety Report 5057655-0 (Version None)
Quarter: 2006Q3

REPORT INFORMATION
  Report Type: 
  Country: None (occurrence: None)
  Receive Date: 20060721
  Receipt Date: 20060109
  Transmission Date: 20061208
  Serious: No
  Sender: FDA-Public Use
  Company Number: US-GLAXOSMITHKLINE-A0588351A

PATIENT
  Age: 54 Year
  Sex: Female

DRUGS (4)
  1. AVANDIA [Suspect]
     Dosage: 1TAB TWICE PER DAY
     Route: 048
  2. METFORMIN [Suspect]
     Dosage: 1TAB TWICE PER DAY
  3. LESCOL [Concomitant]
  4. NAPROXEN [Concomitant]

REACTIONS (2)
  - DRUG INEFFECTIVE [None]
  - GINGIVAL BLEEDING [None]
